FAERS Safety Report 9206493 (Version 1)
Quarter: 2013Q2

REPORT INFORMATION
  Report Type: Spontaneous
  Country: GB (occurrence: None)
  Receive Date: 20130401
  Receipt Date: 20130401
  Transmission Date: 20140414
  Serious: Yes (Life-Threatening, Congenital Anomaly, Other)
  Sender: FDA-Public Use
  Company Number: 2007-06142

PATIENT
  Age: 19 Year
  Sex: Female

DRUGS (14)
  1. ALLOPURINOL [Suspect]
     Route: 048
  2. OMEPRAZOLE (UNKNOWN) (OMEPRAZOLE) UNK, UNKUNK? [Suspect]
  3. MORPHINE SULFATE (UNKNOWN) (MORPHINE SULFATE) UNK, UNKUNK [Suspect]
     Route: 042
  4. PARACETAMOL (PARACETAMOL) [Suspect]
     Route: 042
  5. ONDANSETRON HYDROCHLORIDE [Suspect]
     Route: 042
  6. CHLORPHENIRAMINE MALEATE [Suspect]
     Route: 042
  7. ACYCLOVIR [Suspect]
  8. CYCLOSPORINE [Suspect]
  9. VORICONAZOLE [Suspect]
     Route: 048
  10. CASPOFUNGIN [Suspect]
     Route: 042
  11. NORETHISTERONE (NORETHISTERONE) [Suspect]
     Route: 048
  12. KETALAR [Suspect]
     Route: 042
     Dates: start: 20070921, end: 20070921
  13. TAZOCIN [Suspect]
     Route: 042
  14. ETOPOPHOS [Suspect]
     Route: 042
     Dates: start: 20070915, end: 20070915

REACTIONS (3)
  - Hepatotoxicity [None]
  - Venoocclusive disease [None]
  - Liver function test abnormal [None]
